FAERS Safety Report 6480302-8 (Version None)
Quarter: 2009Q4

REPORT INFORMATION
  Report Type: 
  Country: None (occurrence: None)
  Receive Date: 20091208
  Receipt Date: 20091126
  Transmission Date: 20100525
  Serious: Yes (Death, Life-Threatening, Hospitalization, Other)
  Sender: FDA-Public Use
  Company Number: SE-ELI_LILLY_AND_COMPANY-SE200903001580

PATIENT
  Age: 14 Year
  Sex: Male
  Weight: 54 kg

DRUGS (3)
  1. STRATTERA [Suspect]
     Indication: ATTENTION DEFICIT/HYPERACTIVITY DISORDER
     Dosage: 25 MG, DAILY (1/D)
     Route: 065
     Dates: start: 20080703, end: 20080701
  2. STRATTERA [Suspect]
     Dosage: 60 MG, DAILY (1/D)
     Route: 065
     Dates: start: 20080701, end: 20081201
  3. STRATTERA [Suspect]
     Dosage: 70 MG, DAILY (1/D)
     Route: 065
     Dates: start: 20081201

REACTIONS (9)
  - CARDIAC ARREST [None]
  - FALL [None]
  - NAUSEA [None]
  - PETIT MAL EPILEPSY [None]
  - SOCIAL AVOIDANT BEHAVIOUR [None]
  - SUDDEN DEATH [None]
  - THERAPEUTIC RESPONSE DECREASED [None]
  - VOMITING [None]
  - WEIGHT INCREASED [None]
